FAERS Safety Report 6638837-0 (Version None)
Quarter: 2010Q1

REPORT INFORMATION
  Report Type: 
  Country: None (occurrence: None)
  Receive Date: 20100317
  Receipt Date: 20100304
  Transmission Date: 20100710
  Serious: Yes (Other)
  Sender: FDA-Public Use
  Company Number: DE-PFIZER INC-2009287500

PATIENT
  Age: 73 Year
  Sex: Female

DRUGS (9)
  1. AROMASIN [Suspect]
     Indication: BREAST CANCER FEMALE
     Dosage: UNK
     Route: 048
     Dates: start: 20091001
  2. SIMVASTATIN [Suspect]
     Dosage: UNK
     Route: 048
  3. NIFURETTEN [Suspect]
     Indication: CYSTITIS
     Dosage: UNK
     Dates: start: 20091001
  4. ATACAND [Concomitant]
     Dosage: UNK
  5. COLECALCIFEROL [Concomitant]
     Dosage: UNK
  6. TROMCARDIN [Concomitant]
     Dosage: UNK
  7. EZETROL [Concomitant]
     Dosage: UNK
  8. MARCUMAR [Concomitant]
     Dosage: UNK
  9. TIM-OPHTAL [Concomitant]
     Dosage: UNK

REACTIONS (4)
  - HYPERSENSITIVITY [None]
  - LACRIMATION INCREASED [None]
  - MYALGIA [None]
  - NASAL DISCOMFORT [None]
